FAERS Safety Report 25086588 (Version 1)
Quarter: 2025Q1

REPORT INFORMATION
  Report Type: Report from Study
  Country: US (occurrence: US)
  Receive Date: 20250317
  Receipt Date: 20250317
  Transmission Date: 20250408
  Serious: Yes (Other)
  Sender: ABBVIE
  Company Number: US-ABBVIE-6172056

PATIENT
  Age: 65 Year
  Sex: Female

DRUGS (1)
  1. RINVOQ [Suspect]
     Active Substance: UPADACITINIB
     Indication: Rheumatoid arthritis
     Route: 048
     Dates: start: 20161001

REACTIONS (4)
  - Pituitary tumour [Recovering/Resolving]
  - Unevaluable event [Not Recovered/Not Resolved]
  - Arthralgia [Not Recovered/Not Resolved]
  - Hip surgery [Recovering/Resolving]

NARRATIVE: CASE EVENT DATE: 20240101
